FAERS Safety Report 18329419 (Version 1)
Quarter: 2020Q3

REPORT INFORMATION
  Report Type: Spontaneous
  Country: US (occurrence: US)
  Receive Date: 20200929
  Receipt Date: 20200929
  Transmission Date: 20201103
  Serious: No
  Sender: FDA-Public Use
  Company Number: None

PATIENT
  Sex: Female

DRUGS (7)
  1. HUMIRA [Suspect]
     Active Substance: ADALIMUMAB
     Indication: COLITIS ULCERATIVE
     Route: 058
     Dates: start: 20200417
  2. HUMIRA [Suspect]
     Active Substance: ADALIMUMAB
     Indication: RECTAL HAEMORRHAGE
     Route: 058
     Dates: start: 20200417
  3. FOLIC ACID. [Concomitant]
     Active Substance: FOLIC ACID
  4. LEVOTHYROXINE. [Concomitant]
     Active Substance: LEVOTHYROXINE
  5. VIETRONIDAZOLE [Concomitant]
  6. ESCITALOPRAM [Concomitant]
     Active Substance: ESCITALOPRAM OXALATE
  7. MERCAPTOPURINE. [Concomitant]
     Active Substance: MERCAPTOPURINE

REACTIONS (3)
  - Skin exfoliation [None]
  - Cheilitis [None]
  - Peripheral swelling [None]
